APPROVED DRUG PRODUCT: ELESTRIN
Active Ingredient: ESTRADIOL
Strength: 0.06% (0.87GM/ACTIVATION)
Dosage Form/Route: GEL, METERED;TRANSDERMAL
Application: N021813 | Product #001
Applicant: VIATRIS SPECIALTY LLC
Approved: Dec 15, 2006 | RLD: Yes | RS: Yes | Type: RX